FAERS Safety Report 5724427-0 (Version None)
Quarter: 2008Q2

REPORT INFORMATION
  Report Type: 
  Country: None (occurrence: None)
  Receive Date: 20080430
  Receipt Date: 20080422
  Transmission Date: 20081010
  Serious: Yes (Other)
  Sender: FDA-Public Use
  Company Number: US-PFIZER INC-2008036408

PATIENT
  Age: 29 Year
  Sex: Female
  Weight: 148 kg

DRUGS (1)
  1. DEPO-PROVERA SUSPENSION/INJ [Suspect]
     Indication: CONTRACEPTION
     Route: 030
     Dates: start: 20080414, end: 20080414

REACTIONS (7)
  - CHILLS [None]
  - HEADACHE [None]
  - MYALGIA [None]
  - NAUSEA [None]
  - PHOTOPHOBIA [None]
  - TREMOR [None]
  - VOMITING [None]
